FAERS Safety Report 16443453 (Version 1)
Quarter: 2019Q2

REPORT INFORMATION
  Report Type: Spontaneous
  Country: US (occurrence: US)
  Receive Date: 20190618
  Receipt Date: 20190618
  Transmission Date: 20190711
  Serious: No
  Sender: FDA-Public Use
  Company Number: US-ACCORD-071519

PATIENT
  Age: 68 Year
  Sex: Female

DRUGS (4)
  1. CYANOCOBALAMIN. [Concomitant]
     Active Substance: CYANOCOBALAMIN
     Dosage: STRENGTH: 500 MG?DOSE: 500 MG TABLET TWICE DAILY BY MOUTH
     Route: 048
     Dates: start: 201407
  2. CAPECITABINE NORTH STAR [Suspect]
     Active Substance: CAPECITABINE
     Indication: CHEMOTHERAPY
     Dosage: STRENGTH: 500 MG
  3. IBRANCE [Suspect]
     Active Substance: PALBOCICLIB
     Indication: BREAST CANCER STAGE IV
     Dosage: STRENGTH: 125 MG?DOSE: 125MG CAPSULE ONCE DAILY BY MOUTH FOR 21 DAYS AND THEN OFF FOR 7 DAYS
     Route: 048
     Dates: start: 201707
  4. PYRIDOXINE [Concomitant]
     Active Substance: PYRIDOXINE
     Dosage: STRENGTH: 100 MG?DOSE: 100 MG TABLET TWICE DAILY BY MOUTH
     Route: 048
     Dates: start: 201407

REACTIONS (3)
  - Dyspnoea [Unknown]
  - Drug ineffective [Unknown]
  - Abdominal discomfort [Recovered/Resolved]

NARRATIVE: CASE EVENT DATE: 20180517
